FAERS Safety Report 11062388 (Version 2)
Quarter: 2015Q2

REPORT INFORMATION
  Report Type: Spontaneous
  Country: IT (occurrence: None)
  Receive Date: 20150422
  Receipt Date: 20150513
  Transmission Date: 20150821
  Serious: Yes (Hospitalization)
  Sender: FDA-Public Use
  Company Number: FK201501759

PATIENT
  Age: 37 Year
  Sex: Female

DRUGS (3)
  1. CISATRACURIUM [Suspect]
     Active Substance: CISATRACURIUM
     Indication: INDUCTION OF ANAESTHESIA
     Dates: start: 20150317, end: 20150317
  2. LEVOFLOXACIN (MANUFACTURER UNKNOWN) (LEVOFLOXACIN) (LEVOFLOXACIN) [Suspect]
     Active Substance: LEVOFLOXACIN
     Indication: ANTIBIOTIC PROPHYLAXIS
     Dosage: INTRAVENOUS (NOT OTHERWISE SPECIFIED)?
     Route: 042
     Dates: start: 20150317, end: 20150317
  3. PROPOFOL FRESENIUS (NOT SPECIFIED) (PROPOFOL) (PROPOFOL) [Suspect]
     Active Substance: PROPOFOL
     Indication: INDUCTION OF ANAESTHESIA
     Route: 042
     Dates: start: 20150317, end: 20150317

REACTIONS (3)
  - Skin reaction [None]
  - Tongue oedema [None]
  - Rash [None]

NARRATIVE: CASE EVENT DATE: 20150317
